FAERS Safety Report 9528967 (Version 1)
Quarter: 2013Q1

REPORT INFORMATION
  Report Type: Spontaneous
  Country: US (occurrence: None)
  Receive Date: 20130329
  Receipt Date: 20130329
  Transmission Date: 20140127
  Serious: No
  Sender: FDA-Public Use
  Company Number: 1000041609

PATIENT
  Age: 50 Year
  Sex: Female

DRUGS (5)
  1. LINZESS (LINACLOTIDE) (290 MICROGRAM, CAPSULES) [Suspect]
     Indication: CONSTIPATION
     Dates: start: 20121211
  2. VALTREX (VALACICLOVIR HYDROCHLORIDE) [Concomitant]
  3. NORCO (ACETAMINOPHEN, HYDROCODONE) [Concomitant]
  4. THYROID MEDICATION (NOS) [Concomitant]
  5. EX-LAX [Concomitant]

REACTIONS (3)
  - Drug ineffective [None]
  - Nausea [None]
  - Abdominal distension [None]
